FAERS Safety Report 6258145-X (Version None)
Quarter: 2009Q3

REPORT INFORMATION
  Report Type: 
  Country: None (occurrence: None)
  Receive Date: 20090702
  Receipt Date: 20090702
  Transmission Date: 20100115
  Serious: Yes (Other)
  Sender: FDA-Public Use
  Company Number: None

PATIENT
  Sex: Female
  Weight: 79.3795 kg

DRUGS (1)
  1. CHANTIX [Suspect]
     Indication: SMOKING CESSATION THERAPY
     Dates: start: 20070926, end: 20071201

REACTIONS (5)
  - AGGRESSION [None]
  - DEPRESSION [None]
  - HOSTILITY [None]
  - LOSS OF EMPLOYMENT [None]
  - PERSONALITY CHANGE [None]
